FAERS Safety Report 5174277-1 (Version None)
Quarter: 2006Q4

REPORT INFORMATION
  Report Type: 
  Country: None (occurrence: None)
  Receive Date: 20061206
  Receipt Date: 20061123
  Transmission Date: 20070319
  Serious: Yes (Death)
  Sender: FDA-Public Use
  Company Number: 233257

PATIENT
  Age: 60 Year
  Sex: Male

DRUGS (2)
  1. RITUXIMAB (RITUXIMAB) CONC FOR SOLUTION FOR INFUSION [Suspect]
     Indication: WALDENSTROM'S MACROGLOBULINAEMIA
     Dosage: 375 MG/M2, 1/WEEK,
  2. THALIDOMIDE (THALIDOMIDE) [Concomitant]

REACTIONS (15)
  - ADENOVIRAL HEPATITIS [None]
  - DIARRHOEA [None]
  - EXTRAMEDULLARY HAEMOPOIESIS [None]
  - GENERALISED OEDEMA [None]
  - HAEMORRHAGIC DIATHESIS [None]
  - HEPATIC NECROSIS [None]
  - HYPOTHERMIA [None]
  - MULTI-ORGAN FAILURE [None]
  - NEUTROPENIA [None]
  - OLIGURIA [None]
  - PANCYTOPENIA [None]
  - PETECHIAE [None]
  - PNEUMONIA [None]
  - SPLENOMEGALY [None]
  - THERAPY NON-RESPONDER [None]
